FAERS Safety Report 20474770 (Version 1)
Quarter: 2022Q1

REPORT INFORMATION
  Report Type: Spontaneous
  Country: US (occurrence: US)
  Receive Date: 20220215
  Receipt Date: 20220215
  Transmission Date: 20220423
  Serious: Yes (Other)
  Sender: FDA-Public Use
  Company Number: US-GLAXOSMITHKLINE-US2022GSK023980

PATIENT
  Sex: Female

DRUGS (3)
  1. ZANTAC [Suspect]
     Active Substance: RANITIDINE HYDROCHLORIDE
     Indication: Dyspepsia
     Dosage: 75 MG, WE
     Route: 065
     Dates: start: 1990, end: 2020
  2. ZANTAC [Suspect]
     Active Substance: RANITIDINE HYDROCHLORIDE
     Indication: Dyspepsia
     Dosage: 75 MG, WE
     Route: 065
     Dates: start: 1990, end: 2020
  3. ZANTAC [Suspect]
     Active Substance: RANITIDINE HYDROCHLORIDE
     Indication: Hyperchlorhydria
     Dosage: 75 MG
     Route: 065

REACTIONS (13)
  - Breast cancer [Unknown]
  - Breast cancer stage I [Unknown]
  - Breast cancer recurrent [Unknown]
  - Breast cancer female [Unknown]
  - Invasive ductal breast carcinoma [Unknown]
  - Breast calcifications [Unknown]
  - Breast disorder [Unknown]
  - Breast neoplasm [Unknown]
  - Breast tenderness [Unknown]
  - Breast fibrosis [Unknown]
  - Breast pain [Unknown]
  - Breast mass [Unknown]
  - Breast cyst [Unknown]
